FAERS Safety Report 22039589 (Version 2)
Quarter: 2023Q2

REPORT INFORMATION
  Report Type: Spontaneous
  Country: DE (occurrence: None)
  Receive Date: 20230227
  Receipt Date: 20230413
  Transmission Date: 20230721
  Serious: Yes (Life-Threatening, Other)
  Sender: FDA-Public Use
  Company Number: 2023A045668

PATIENT
  Age: 22468 Day
  Sex: Male

DRUGS (1)
  1. EVUSHELD [Suspect]
     Active Substance: CILGAVIMAB\TIXAGEVIMAB
     Dosage: 2 ONCE, DOSE UNKNOWN
     Route: 030
     Dates: start: 20221206

REACTIONS (3)
  - Blood pressure increased [Not Recovered/Not Resolved]
  - Infarction [Not Recovered/Not Resolved]
  - Taste disorder [Recovered/Resolved]

NARRATIVE: CASE EVENT DATE: 20221206
